FAERS Safety Report 23309270 (Version 1)
Quarter: 2023Q4

REPORT INFORMATION
  Report Type: Spontaneous
  Country: JP (occurrence: JP)
  Receive Date: 20231218
  Receipt Date: 20231218
  Transmission Date: 20240110
  Serious: Yes (Hospitalization)
  Sender: FDA-Public Use
  Company Number: JP-BAYER-2023A174634

PATIENT
  Age: 33 Year
  Sex: Female

DRUGS (1)
  1. YAZ [Suspect]
     Active Substance: DROSPIRENONE\ETHINYL ESTRADIOL
     Dosage: DAILY DOSE 1 DF

REACTIONS (3)
  - Thrombosis [Unknown]
  - Fibrin D dimer increased [None]
  - Peripheral swelling [None]

NARRATIVE: CASE EVENT DATE: 20231101
